FAERS Safety Report 4432721-9 (Version None)
Quarter: 2004Q3

REPORT INFORMATION
  Report Type: 
  Country: None (occurrence: None)
  Receive Date: 20040820
  Receipt Date: 20040805
  Transmission Date: 20050211
  Serious: Yes (Other)
  Sender: FDA-Public Use
  Company Number: 2004-00428FE

PATIENT
  Age: 48 Year
  Sex: Female

DRUGS (5)
  1. PENTASA [Suspect]
     Indication: COLITIS ULCERATIVE
     Dosage: 3000 MG , ORALLY
     Route: 048
     Dates: start: 20040623, end: 20040701
  2. SULFASALAZINE [Suspect]
     Indication: COLITIS ULCERATIVE
     Dosage: 2000 MG, ORALLY
     Route: 048
     Dates: start: 20040611, end: 20040616
  3. DIAZEPAM [Concomitant]
  4. CITALOPRAM [Concomitant]
  5. METRONIDAZOLE [Concomitant]

REACTIONS (1)
  - THROMBOCYTOPENIA [None]
